FAERS Safety Report 23321146 (Version 1)
Quarter: 2023Q4

REPORT INFORMATION
  Report Type: Spontaneous
  Country: None (occurrence: FR)
  Receive Date: 20231220
  Receipt Date: 20231220
  Transmission Date: 20240109
  Serious: Yes (Hospitalization)
  Sender: FDA-Public Use
  Company Number: FR-B.Braun Medical Inc.-2149589

PATIENT
  Age: 72 Year
  Sex: Male
  Weight: 130 kg

DRUGS (16)
  1. ACETAMINOPHEN [Suspect]
     Active Substance: ACETAMINOPHEN
     Indication: Pain
     Route: 042
  2. FENTANYL [Suspect]
     Active Substance: FENTANYL\FENTANYL CITRATE
  3. MORPHINE SULFATE [Suspect]
     Active Substance: MORPHINE SULFATE
  4. IRBESARTAN [Concomitant]
     Active Substance: IRBESARTAN
  5. NICARDIPINE [Concomitant]
     Active Substance: NICARDIPINE
  6. ENOXAPARIN SODIUM [Concomitant]
     Active Substance: ENOXAPARIN SODIUM
  7. REPAGLINIDE [Concomitant]
     Active Substance: REPAGLINIDE
  8. TAHOR [Concomitant]
     Active Substance: ATORVASTATIN CALCIUM
  9. NEURONTIN [Concomitant]
     Active Substance: GABAPENTIN
  10. NEFOPAM [Concomitant]
     Active Substance: NEFOPAM
  11. ALFUZOSIN [Concomitant]
     Active Substance: ALFUZOSIN
  12. SPIRONOLACTONE [Concomitant]
     Active Substance: SPIRONOLACTONE
  13. ARANESP [Concomitant]
     Active Substance: DARBEPOETIN ALFA
  14. COLCHICINE [Concomitant]
     Active Substance: COLCHICINE
  15. COLCHICINE [Concomitant]
     Active Substance: COLCHICINE
  16. JANUVIA [Concomitant]
     Active Substance: SITAGLIPTIN PHOSPHATE

REACTIONS (1)
  - Cholestasis [None]
